FAERS Safety Report 18726533 (Version 2)
Quarter: 2022Q2

REPORT INFORMATION
  Report Type: Report from Study
  Country: US (occurrence: US)
  Receive Date: 20210111
  Receipt Date: 20220517
  Transmission Date: 20220721
  Serious: Yes (Hospitalization, Other)
  Sender: FDA-Public Use
  Company Number: US-SHIRE-US202017178

PATIENT
  Age: 42 Year
  Sex: Female

DRUGS (17)
  1. TEDUGLUTIDE [Suspect]
     Active Substance: TEDUGLUTIDE
     Indication: Short-bowel syndrome
     Dosage: UNK, QD
     Route: 058
     Dates: start: 20160416
  2. TEDUGLUTIDE [Suspect]
     Active Substance: TEDUGLUTIDE
     Indication: Short-bowel syndrome
     Dosage: UNK, QD
     Route: 058
     Dates: start: 20160416
  3. TEDUGLUTIDE [Suspect]
     Active Substance: TEDUGLUTIDE
     Indication: Short-bowel syndrome
     Dosage: UNK, QD
     Route: 058
     Dates: start: 20160416
  4. TEDUGLUTIDE [Suspect]
     Active Substance: TEDUGLUTIDE
     Indication: Short-bowel syndrome
     Dosage: UNK, QD
     Route: 058
     Dates: start: 20160416
  5. TEDUGLUTIDE [Suspect]
     Active Substance: TEDUGLUTIDE
     Dosage: UNK, QD
     Route: 058
     Dates: start: 20160816
  6. TEDUGLUTIDE [Suspect]
     Active Substance: TEDUGLUTIDE
     Dosage: UNK, QD
     Route: 058
     Dates: start: 20160816
  7. TEDUGLUTIDE [Suspect]
     Active Substance: TEDUGLUTIDE
     Dosage: UNK, QD
     Route: 058
     Dates: start: 20160816
  8. TEDUGLUTIDE [Suspect]
     Active Substance: TEDUGLUTIDE
     Dosage: UNK, QD
     Route: 058
     Dates: start: 20160816
  9. TEDUGLUTIDE [Suspect]
     Active Substance: TEDUGLUTIDE
     Dosage: 2.99 MILLIGRAM, QD
     Route: 058
     Dates: start: 20170710, end: 202205
  10. TEDUGLUTIDE [Suspect]
     Active Substance: TEDUGLUTIDE
     Dosage: 2.99 MILLIGRAM, QD
     Route: 058
     Dates: start: 20170710, end: 202205
  11. TEDUGLUTIDE [Suspect]
     Active Substance: TEDUGLUTIDE
     Dosage: 2.99 MILLIGRAM, QD
     Route: 058
     Dates: start: 20170710, end: 202205
  12. TEDUGLUTIDE [Suspect]
     Active Substance: TEDUGLUTIDE
     Dosage: 2.99 MILLIGRAM, QD
     Route: 058
     Dates: start: 20170710, end: 202205
  13. TEDUGLUTIDE [Suspect]
     Active Substance: TEDUGLUTIDE
     Dosage: 2.99 MILLIGRAM, QD
     Route: 058
     Dates: start: 20190815
  14. TEDUGLUTIDE [Suspect]
     Active Substance: TEDUGLUTIDE
     Dosage: 2.99 MILLIGRAM, QD
     Route: 058
     Dates: start: 20190815
  15. TEDUGLUTIDE [Suspect]
     Active Substance: TEDUGLUTIDE
     Dosage: 2.99 MILLIGRAM, QD
     Route: 058
     Dates: start: 20190815
  16. TEDUGLUTIDE [Suspect]
     Active Substance: TEDUGLUTIDE
     Dosage: 2.99 MILLIGRAM, QD
     Route: 058
     Dates: start: 20190815
  17. AMINO ACIDS\CARBOHYDRATES\MINERALS\VITAMINS [Concomitant]
     Active Substance: AMINO ACIDS\CARBOHYDRATES\MINERALS\VITAMINS
     Indication: Product used for unknown indication

REACTIONS (9)
  - Wound infection [Unknown]
  - Vascular device infection [Unknown]
  - Infection [Recovering/Resolving]
  - Sepsis [Unknown]
  - Fungal infection [Unknown]
  - Pyrexia [Unknown]
  - Blood culture positive [Unknown]
  - Hospice care [Unknown]
  - Expired product administered [Unknown]

NARRATIVE: CASE EVENT DATE: 20200622
